FAERS Safety Report 18276340 (Version 1)
Quarter: 2020Q3

REPORT INFORMATION
  Report Type: Spontaneous
  Country: DE (occurrence: DE)
  Receive Date: 20200917
  Receipt Date: 20200917
  Transmission Date: 20201103
  Serious: Yes (Hospitalization)
  Sender: FDA-Public Use
  Company Number: DE-TEVA-2020-DE-1827310

PATIENT
  Age: 14 Year
  Sex: Male
  Weight: 39 kg

DRUGS (10)
  1. REDUCTO?SPEZIAL [Concomitant]
     Indication: CHRONIC KIDNEY DISEASE-MINERAL AND BONE DISORDER
     Dosage: 2 DOSAGE FORMS DAILY; 602MG / 360MG 1? 0 ?1 SINCE AT LEAST 06.2019
     Route: 048
     Dates: start: 201906
  2. EINSALPHA 2MICROGRAM/ML TROPFEN [Concomitant]
     Indication: CHRONIC KIDNEY DISEASE-MINERAL AND BONE DISORDER
     Dosage: 18 GTT
     Route: 048
     Dates: start: 20100630
  3. PREDNISOLON [Suspect]
     Active Substance: PREDNISOLONE
     Indication: RENAL TRANSPLANT
     Dosage: 5 MG
     Route: 048
     Dates: start: 201101
  4. MYCOPHENOLATMOFETIL [Suspect]
     Active Substance: MYCOPHENOLATE MOFETIL
     Indication: RENAL TRANSPLANT
     Dosage: DAILY DOSE: 800 MG MILLGRAM(S) EVERY DAYS 2 SEPARATED DOSES
     Route: 048
     Dates: start: 201011
  5. TACROLIMUS. [Suspect]
     Active Substance: TACROLIMUS
     Indication: IMMUNOSUPPRESSION
     Dosage: DAILY DOSE: 5.2 MG MILLGRAM(S) EVERY DAYS 2 SEPARATED DOSES
     Route: 048
     Dates: start: 201703
  6. BICANORM [Concomitant]
     Active Substance: SODIUM BICARBONATE
     Indication: RENAL TUBULAR ACIDOSIS
     Dosage: DAILY DOSE: 3 G GRAM(S) EVERY DAYS 3 SEPARATED DOSES
     Route: 048
     Dates: start: 201009
  7. VIGANTOL OEL [Concomitant]
     Indication: VITAMIN D DEFICIENCY
     Dosage: 8 GTT DAILY;
     Route: 048
     Dates: start: 201006
  8. FERRUM HAUSMANN 50MG/ML [Concomitant]
     Indication: IRON DEFICIENCY
     Dosage: 40 GTT
     Route: 048
     Dates: start: 201907
  9. AMLODIPIN [Concomitant]
     Active Substance: AMLODIPINE BESYLATE
     Indication: HYPERTENSION
     Dosage: DAILY DOSE: 10 MG MILLGRAM(S) EVERY DAYS 2 SEPARATED DOSES
     Route: 048
     Dates: start: 20170901
  10. MAGNESIUM VERLA N [Concomitant]
     Active Substance: MAGNESIUM
     Indication: BLOOD MAGNESIUM ABNORMAL
     Dosage: 2 SEPARATED DOSES, 3.3 MILLIMOL
     Route: 048
     Dates: start: 20180205

REACTIONS (4)
  - Gastrointestinal pain [Recovered/Resolved]
  - Vomiting [Recovered/Resolved]
  - Erythema [Recovered/Resolved]
  - Gastroenteritis adenovirus [Recovered/Resolved]

NARRATIVE: CASE EVENT DATE: 20191125
